FAERS Safety Report 12840578 (Version 2)
Quarter: 2016Q4

REPORT INFORMATION
  Report Type: Spontaneous
  Country: BR (occurrence: BR)
  Receive Date: 20161012
  Receipt Date: 20161020
  Transmission Date: 20170207
  Serious: Yes (Other)
  Sender: FDA-Public Use
  Company Number: BR-ASTRAZENECA-2016SF06386

PATIENT
  Age: 844 Month
  Sex: Female

DRUGS (8)
  1. SCITALAX [Concomitant]
  2. POLYMINERAL [Concomitant]
  3. DONAREN [Concomitant]
     Active Substance: TRAZODONE HYDROCHLORIDE
  4. LUFTAL [Concomitant]
     Active Substance: DIMETHICONE
     Indication: FLATULENCE
  5. FRONTAL [Concomitant]
     Active Substance: ALPRAZOLAM
     Indication: DEPRESSION
  6. ZART [Concomitant]
     Indication: HYPERTENSION
  7. RIVOTRIL [Concomitant]
     Active Substance: CLONAZEPAM
     Indication: DEPRESSION
  8. NEXIUM [Suspect]
     Active Substance: ESOMEPRAZOLE MAGNESIUM
     Indication: GASTRITIS
     Route: 048

REACTIONS (2)
  - Depression [Recovered/Resolved]
  - Gastric polyps [Recovered/Resolved]

NARRATIVE: CASE EVENT DATE: 201609
